FAERS Safety Report 6817026-0 (Version None)
Quarter: 2010Q3

REPORT INFORMATION
  Report Type: 
  Country: None (occurrence: None)
  Receive Date: 20100706
  Receipt Date: 20100618
  Transmission Date: 20110219
  Serious: Yes (Hospitalization)
  Sender: FDA-Public Use
  Company Number: US-ROCHE-643684

PATIENT
  Sex: Female
  Weight: 83 kg

DRUGS (15)
  1. TOCILIZUMAB [Suspect]
     Indication: RHEUMATOID ARTHRITIS
     Dosage: REPORTED FORM: VIAL
     Route: 042
     Dates: start: 20090609, end: 20090708
  2. TOCILIZUMAB [Suspect]
     Route: 042
     Dates: start: 20090804, end: 20090825
  3. PREDNISONE TAB [Concomitant]
     Route: 048
     Dates: start: 20080630
  4. ALLOPURINOL [Concomitant]
     Route: 048
     Dates: start: 20070118
  5. OXYCODONE AND ACETAMINOPHEN [Concomitant]
     Dosage: REPORTED DRUG: OXYCODONE W/APAP, TDD: 5/325 MG DAILY
     Route: 048
     Dates: start: 20090529
  6. OYSTERCAL-D [Concomitant]
     Dosage: REPORTED DRUG: OYST CAL D
     Route: 048
     Dates: start: 20000801
  7. MIRTAZAPINE [Concomitant]
     Route: 048
     Dates: start: 20061214
  8. LEFLUNOMIDE [Concomitant]
     Route: 048
     Dates: start: 20090112
  9. FOLGARD [Concomitant]
     Route: 048
     Dates: start: 20090601
  10. LIPITOR [Concomitant]
     Route: 048
     Dates: start: 20000801
  11. OMEPRAZOLE [Concomitant]
     Route: 048
     Dates: start: 20081205
  12. BONIVA [Concomitant]
     Route: 048
     Dates: start: 20060615
  13. COZAAR [Concomitant]
     Dates: start: 20090630
  14. GABAPENTIN [Concomitant]
     Dates: start: 20090728
  15. JANTOVEN [Concomitant]
     Route: 048
     Dates: start: 20080201

REACTIONS (1)
  - CARDIAC FAILURE CONGESTIVE [None]
